FAERS Safety Report 9720775 (Version 2)
Quarter: 2013Q4

REPORT INFORMATION
  Report Type: Report from Study
  Country: CA (occurrence: CA)
  Receive Date: 20131129
  Receipt Date: 20131204
  Transmission Date: 20140711
  Serious: Yes (Hospitalization, Other)
  Sender: FDA-Public Use
  Company Number: PHHY2013CA138165

PATIENT
  Sex: Female

DRUGS (8)
  1. ACLASTA [Suspect]
     Indication: OSTEOPOROSIS
     Dosage: UNK UKN, UNK
     Route: 042
     Dates: start: 20111123
  2. ACLASTA [Suspect]
     Dosage: UNK UKN, UNK
     Route: 042
     Dates: start: 20121121
  3. MONOCOR [Concomitant]
     Dosage: UNK UKN, UNK
  4. LASIX [Concomitant]
     Dosage: UNK UKN, UNK
  5. ALTACE [Concomitant]
     Dosage: UNK UKN, UNK
  6. AAS [Concomitant]
     Dosage: UNK UKN, UNK
  7. IMDUR [Concomitant]
     Dosage: UNK UKN, UNK
  8. ZOLOFT [Concomitant]
     Dosage: UNK UKN, UNK

REACTIONS (2)
  - Pulmonary oedema [Recovered/Resolved]
  - Cardiac disorder [Recovered/Resolved]
